FAERS Safety Report 10876558 (Version 2)
Quarter: 2015Q1

REPORT INFORMATION
  Report Type: Spontaneous
  Country: ES (occurrence: ES)
  Receive Date: 20150301
  Receipt Date: 20150313
  Transmission Date: 20150721
  Serious: Yes (Hospitalization)
  Sender: FDA-Public Use
  Company Number: ES-TEVA-543568ISR

PATIENT
  Age: 81 Year
  Sex: Female

DRUGS (1)
  1. GALANTAMINE [Suspect]
     Active Substance: GALANTAMINE
     Indication: DEMENTIA ALZHEIMER^S TYPE
     Dosage: ADMINISTERED IN INCREASING DOSES
     Route: 065

REACTIONS (1)
  - Acute generalised exanthematous pustulosis [Recovering/Resolving]
